FAERS Safety Report 9068913 (Version 1)
Quarter: 2013Q1

REPORT INFORMATION
  Report Type: Spontaneous
  Country: US (occurrence: None)
  Receive Date: 20130213
  Receipt Date: 20130213
  Transmission Date: 20140127
  Serious: Yes (Hospitalization)
  Sender: FDA-Public Use
  Company Number: None

PATIENT
  Sex: Female
  Weight: 70.31 kg

DRUGS (1)
  1. XARELTO, 15 MG, FEDERAL DRUG [Suspect]
     Indication: ATRIAL FIBRILLATION
     Dates: start: 20130105

REACTIONS (1)
  - Epistaxis [None]
